FAERS Safety Report 16332478 (Version 1)
Quarter: 2019Q2

REPORT INFORMATION
  Report Type: Spontaneous
  Country: US (occurrence: US)
  Receive Date: 20190520
  Receipt Date: 20190520
  Transmission Date: 20190711
  Serious: No
  Sender: FDA-Public Use
  Company Number: US-PFIZER INC-2019203468

PATIENT
  Age: 67 Year
  Sex: Female
  Weight: 72.56 kg

DRUGS (2)
  1. VENLAFAXINE HCL [Suspect]
     Active Substance: VENLAFAXINE HYDROCHLORIDE
     Indication: ANXIETY
     Dosage: UNK, 1X/DAY
     Dates: start: 201001
  2. OLMESARTAN-HCTZ [Concomitant]
     Active Substance: HYDROCHLOROTHIAZIDE\OLMESARTAN MEDOXOMIL
     Indication: HYPERTENSION
     Dosage: UNK UNK, 1X/DAY(20-12.5 MG)
     Route: 048

REACTIONS (2)
  - Drug ineffective [Unknown]
  - Blood cholesterol increased [Unknown]
